FAERS Safety Report 7465358-8 (Version None)
Quarter: 2011Q2

REPORT INFORMATION
  Report Type: 
  Country: None (occurrence: None)
  Receive Date: 20110509
  Receipt Date: 20110503
  Transmission Date: 20111010
  Serious: Yes (Death, Life-Threatening, Hospitalization, Other)
  Sender: FDA-Public Use
  Company Number: SE-BRISTOL-MYERS SQUIBB COMPANY-15544760

PATIENT
  Age: 34 Year
  Sex: Male

DRUGS (5)
  1. PERFALGAN [Concomitant]
     Dates: start: 20100223
  2. TESTOSTERONE [Concomitant]
     Dates: start: 20101120
  3. FLAGYL [Concomitant]
     Dates: start: 20100201
  4. YERVOY [Suspect]
     Indication: MALIGNANT MELANOMA
     Dosage: INTERRUPTED ON 27OCT2010; ROUTE=4/4 PLANNED
     Dates: start: 20100824, end: 20101027
  5. NEXIUM [Concomitant]
     Dates: start: 20100216

REACTIONS (4)
  - NEOPLASM MALIGNANT [None]
  - PNEUMONITIS [None]
  - DYSPNOEA [None]
  - SMALL INTESTINAL PERFORATION [None]
